FAERS Safety Report 6897175-1 (Version None)
Quarter: 2010Q3

REPORT INFORMATION
  Report Type: 
  Country: None (occurrence: None)
  Receive Date: 20100802
  Receipt Date: 20070416
  Transmission Date: 20110219
  Serious: Yes (Other)
  Sender: FDA-Public Use
  Company Number: US-PFIZER INC-2007030897

PATIENT
  Sex: Female
  Weight: 61.7 kg

DRUGS (1)
  1. LYRICA [Suspect]
     Indication: BACK PAIN
     Dates: start: 20070301, end: 20070412

REACTIONS (2)
  - DYSPNOEA [None]
  - WEIGHT INCREASED [None]
